FAERS Safety Report 6984998-3 (Version None)
Quarter: 2010Q3

REPORT INFORMATION
  Report Type: 
  Country: None (occurrence: None)
  Receive Date: 20100915
  Receipt Date: 20100901
  Transmission Date: 20110219
  Serious: Yes (Other)
  Sender: FDA-Public Use
  Company Number: PHHY2010DE60589

PATIENT

DRUGS (1)
  1. CERTICAN [Suspect]
     Indication: HEART TRANSPLANT

REACTIONS (3)
  - HAEMOGLOBIN DECREASED [None]
  - IRON OVERLOAD [None]
  - SERUM FERRITIN INCREASED [None]
